FAERS Safety Report 21124164 (Version 1)
Quarter: 2022Q3

REPORT INFORMATION
  Report Type: Spontaneous
  Country: US (occurrence: US)
  Receive Date: 20220725
  Receipt Date: 20220725
  Transmission Date: 20221026
  Serious: No
  Sender: FDA-Public Use
  Company Number: US-SA-SAC20220719000286

PATIENT
  Age: 79 Year
  Sex: Male

DRUGS (1)
  1. DUPIXENT [Suspect]
     Active Substance: DUPILUMAB
     Dosage: 300MG/2ML, OTHER
     Route: 058
     Dates: start: 202207

REACTIONS (3)
  - Anosmia [Unknown]
  - Ageusia [Unknown]
  - Product dose omission issue [Unknown]
